FAERS Safety Report 9199762 (Version 1)
Quarter: 2013Q1

REPORT INFORMATION
  Report Type: Spontaneous
  Country: US (occurrence: None)
  Receive Date: 20130326
  Receipt Date: 20130326
  Transmission Date: 20140127
  Serious: Yes (Hospitalization)
  Sender: FDA-Public Use
  Company Number: CIP07001716

PATIENT
  Age: 75 Year
  Sex: Female
  Weight: 52.3 kg

DRUGS (39)
  1. ACTONEL (RISEDRONATE SODIUM) TABLET, 35MG [Suspect]
     Dosage: ONCE WEEKLY
     Route: 048
     Dates: start: 20020923, end: 201012
  2. FOSAMAX (ALENDRONATE SODIUM) [Suspect]
     Dosage: ONCE DAILY
     Route: 048
     Dates: start: 20000301, end: 20020923
  3. PREMARIN (ESTROGENS CONJUGATED) [Concomitant]
  4. SYNTHROID (LEVOTHYROXINE SODIUM) [Concomitant]
  5. SPIRONOLACTONE AND HYDROCHLOROTHIAZIDE (HYDROCHLOROTHIAZIDE, SPIRONOLACTONE) [Concomitant]
  6. ATENOLOL (ATENOLOL) [Concomitant]
  7. COZAAR (LOSARTAN POTASSIUM) [Concomitant]
  8. ASPIRIN (ACETYLSALICYLIC ACID) [Concomitant]
  9. PLAVIX ?/01220701/ (CLOPIDOGREL) [Concomitant]
  10. MECLIZINE?/00072801/ (MECLOZINE) [Concomitant]
  11. PYRIDIUM PLUS (HYOSCYAMINE HYDROBROMIDE, PHENAZOPYRIDINE HYDROCHLORIDE, SECBUTABARBITAL) [Concomitant]
  12. BACLOFEN (BACLOFEN) [Concomitant]
  13. FLOMAX?/01280302/ (TAMSULOSIN HYDROCHLORIDE) [Concomitant]
  14. DETROL LA (TOLTERODINE L-TARTRATE) [Concomitant]
  15. SANCTURA (TROSPIUM CHLORIDE) [Concomitant]
  16. NEXIUM?/01479302/ (ESOMEPRAZOLE MAGNESIUM) [Concomitant]
  17. PANTOPRAZOLE (PANTOPRAZOLE) [Concomitant]
  18. ZEGERID?/00661201/ (OMEPRAZOLE) [Concomitant]
  19. CANASA (MESALAZINE) [Concomitant]
  20. ZELNORM (TEGASEROD MALEATE) [Concomitant]
  21. PROSED/DS (ATROPINE SULFATE, BENZOIC ACID, HYOSCYAMINE SULFATE, METHENAMINE, METHYLTHIONINIUM LORIDE, PHENYL SALICYLATE) [Concomitant]
  22. GLYCOLAX (MACROGOL) [Concomitant]
  23. ALLEGRA [Concomitant]
  24. PROAIR HFA (SALBUTAMOL SULFATE) [Concomitant]
  25. NASONEX (MOMETASONE FUROATE) [Concomitant]
  26. FLUCONAZOLE (FLUCONAZOLE) [Concomitant]
  27. CLINDAMYCIN (CLINDAMYCIN) [Concomitant]
  28. ZOVIRAX?/00587301/ (ACICLOVIR) [Concomitant]
  29. NEURONTIN (GABAPENTIN) [Concomitant]
  30. ALPRAZOLAM (ALPRAZOLAM) [Concomitant]
  31. CLONAZEPAM (CLONAZEPAM) (CLONAZEPAM) [Concomitant]
  32. FLEXERIL?/00428402/ (CYCLOBENZAPRINE HYDROCHLORIDE) [Concomitant]
  33. METHOCARBAMOL (METHOCARBAMOL) [Concomitant]
  34. NABUMETONE(NABUMETONE) [Concomitant]
  35. MOBIC (MELOXICAM) [Concomitant]
  36. BEXTRA /00428402/ (PARECOXIB SODIUM) [Concomitant]
  37. CALCIUM (CALCIUM) [Concomitant]
  38. VITAMIN D?/00318501/ (COLECALCIFEROL) [Concomitant]
  39. VITAMINS NOS (VITAMINS NOS) [Concomitant]

REACTIONS (11)
  - Pathological fracture [None]
  - Pain in extremity [None]
  - Bone disorder [None]
  - Low turnover osteopathy [None]
  - Joint instability [None]
  - Fall [None]
  - Femur fracture [None]
  - Osteogenesis imperfecta [None]
  - Multiple fractures [None]
  - Pain [None]
  - Osteoarthritis [None]
